FAERS Safety Report 4406021-7 (Version None)
Quarter: 2004Q3

REPORT INFORMATION
  Report Type: 
  Country: None (occurrence: None)
  Receive Date: 20040723
  Receipt Date: 20040322
  Transmission Date: 20050211
  Serious: No
  Sender: FDA-Public Use
  Company Number: US-GLAXOSMITHKLINE-A0503826A

PATIENT
  Age: 50 Year
  Sex: Male

DRUGS (1)
  1. AVANDIA [Suspect]
     Dosage: 4MCG PER DAY
     Route: 048
     Dates: start: 20040302, end: 20040322

REACTIONS (3)
  - EYE PRURITUS [None]
  - EYE REDNESS [None]
  - LACRIMATION INCREASED [None]
